FAERS Safety Report 7866325-2 (Version None)
Quarter: 2011Q4

REPORT INFORMATION
  Report Type: 
  Country: None (occurrence: None)
  Receive Date: 20111028
  Receipt Date: 20110531
  Transmission Date: 20120403
  Serious: No
  Sender: FDA-Public Use
  Company Number: US-GLAXOSMITHKLINE-A0929687A

PATIENT
  Age: 61 Year
  Sex: Female

DRUGS (3)
  1. STEROID [Concomitant]
  2. ANTIBIOTICS [Concomitant]
  3. ADVAIR DISKUS 100/50 [Suspect]
     Indication: PNEUMONIA
     Dosage: 1PUFF TWICE PER DAY
     Route: 055
     Dates: start: 20110520, end: 20110524

REACTIONS (2)
  - THROAT TIGHTNESS [None]
  - THROAT IRRITATION [None]
